FAERS Safety Report 9400919 (Version 1)
Quarter: 2013Q3

REPORT INFORMATION
  Report Type: Spontaneous
  Country: US (occurrence: None)
  Receive Date: 20130712
  Receipt Date: 20130712
  Transmission Date: 20140515
  Serious: Yes (Other)
  Sender: FDA-Public Use
  Company Number: None

PATIENT
  Sex: Male
  Weight: 94.35 kg

DRUGS (1)
  1. CLOPIDOGREL SUNPHARMA [Suspect]
     Indication: CAROTID ARTERY DISSECTION
     Route: 048
     Dates: start: 20130615, end: 20130620

REACTIONS (2)
  - Dizziness [None]
  - Dizziness [None]
